FAERS Safety Report 24350579 (Version 1)
Quarter: 2024Q3

REPORT INFORMATION
  Report Type: Spontaneous
  Country: US (occurrence: US)
  Receive Date: 20240923
  Receipt Date: 20240923
  Transmission Date: 20241017
  Serious: Yes (Other)
  Sender: BAYER
  Company Number: US-BAYER-2024A132621

PATIENT
  Sex: Female

DRUGS (1)
  1. MIRALAX [Suspect]
     Active Substance: POLYETHYLENE GLYCOL 3350
     Indication: Colonoscopy
     Dosage: UNK
     Dates: start: 20240822

REACTIONS (5)
  - Blood pressure decreased [None]
  - Heart rate increased [None]
  - Somnolence [None]
  - Dehydration [None]
  - Off label use [None]
